FAERS Safety Report 19107320 (Version 1)
Quarter: 2021Q2

REPORT INFORMATION
  Report Type: Spontaneous
  Country: US (occurrence: US)
  Receive Date: 20210408
  Receipt Date: 20210408
  Transmission Date: 20210717
  Serious: Yes (Hospitalization, Other)
  Sender: FDA-Public Use
  Company Number: None

PATIENT
  Age: 63 Year
  Sex: Male
  Weight: 121 kg

DRUGS (2)
  1. PRASUGREL (PRASUGREL HCL 10MG TAB) [Suspect]
     Active Substance: PRASUGREL
     Indication: STENT PLACEMENT
     Route: 048
     Dates: start: 20201203, end: 20201210
  2. PRASUGREL (PRASUGREL HCL 10MG TAB) [Suspect]
     Active Substance: PRASUGREL
     Indication: CARDIAC OPERATION
     Route: 048
     Dates: start: 20201203, end: 20201210

REACTIONS (2)
  - Haemorrhage intracranial [None]
  - Subdural haematoma [None]

NARRATIVE: CASE EVENT DATE: 20201210
